FAERS Safety Report 20812727 (Version 1)
Quarter: 2022Q2

REPORT INFORMATION
  Report Type: Spontaneous
  Country: US (occurrence: US)
  Receive Date: 20220511
  Receipt Date: 20220511
  Transmission Date: 20220720
  Serious: Yes (Hospitalization, Other)
  Sender: FDA-Public Use
  Company Number: US-BION-010763

PATIENT
  Age: 10 Year
  Sex: Female
  Weight: 49.4 kg

DRUGS (2)
  1. ETHOSUXIMIDE [Suspect]
     Active Substance: ETHOSUXIMIDE
     Indication: Petit mal epilepsy
  2. AMOXICILLIN [Concomitant]
     Active Substance: AMOXICILLIN

REACTIONS (3)
  - Lupus-like syndrome [Recovered/Resolved]
  - Tubulointerstitial nephritis [Recovered/Resolved]
  - Nephrotic syndrome [Recovered/Resolved]
